FAERS Safety Report 8606708-6 (Version None)
Quarter: 2012Q3

REPORT INFORMATION
  Report Type: 
  Country: None (occurrence: None)
  Receive Date: 20120820
  Receipt Date: 20120808
  Transmission Date: 20120928
  Serious: Yes (Hospitalization)
  Sender: FDA-Public Use
  Company Number: AU-ROCHE-1100368

PATIENT
  Sex: Male

DRUGS (1)
  1. ROACTEMRA [Suspect]
     Indication: RHEUMATOID ARTHRITIS
     Route: 042
     Dates: start: 20100908

REACTIONS (5)
  - HEADACHE [None]
  - MALAISE [None]
  - DYSPNOEA [None]
  - SLOW SPEECH [None]
  - FEELING ABNORMAL [None]
